FAERS Safety Report 5682482-0 (Version None)
Quarter: 2008Q1

REPORT INFORMATION
  Report Type: 
  Country: None (occurrence: None)
  Receive Date: 20080326
  Receipt Date: 20080326
  Transmission Date: 20080703
  Serious: Yes (Life-Threatening)
  Sender: FDA-Public Use
  Company Number: None

PATIENT
  Age: 57 Year
  Sex: Female
  Weight: 93.3 kg

DRUGS (14)
  1. TRETINOIN [Suspect]
     Indication: ACUTE MYELOID LEUKAEMIA
     Dosage: 40 MG Q12 PO
     Route: 048
     Dates: start: 20080103, end: 20080111
  2. LANSOPRAZOLE [Concomitant]
  3. DIPHENHYDRAMINE HCL [Concomitant]
  4. ONDANSETRON [Concomitant]
  5. SENNA [Concomitant]
  6. DOCUSATE [Concomitant]
  7. OXYCODONE HCL [Concomitant]
  8. LORAZEPAM [Concomitant]
  9. PROCHLORPERAZINE [Concomitant]
  10. ALLOPURINOL [Concomitant]
  11. ASPIRIN [Concomitant]
  12. METOPROLOL TARTRATE [Concomitant]
  13. IDARUBICIN HCL [Concomitant]
  14. CEFEPIME [Concomitant]

REACTIONS (6)
  - CHEST PAIN [None]
  - CHEST X-RAY ABNORMAL [None]
  - DYSPNOEA [None]
  - OEDEMA [None]
  - PYREXIA [None]
  - RETINOIC ACID SYNDROME [None]
